FAERS Safety Report 5135908-5 (Version None)
Quarter: 2006Q4

REPORT INFORMATION
  Report Type: 
  Country: None (occurrence: None)
  Receive Date: 20061019
  Receipt Date: 20061006
  Transmission Date: 20070319
  Serious: Yes (Hospitalization, Other)
  Sender: FDA-Public Use
  Company Number: CHWYE150106OCT06

PATIENT
  Age: 83 Year
  Sex: Male

DRUGS (13)
  1. EFFEXOR [Suspect]
     Indication: DEPRESSION
     Dosage: 75 MG 1X PER 1 DAY ORAL
     Route: 048
     Dates: start: 20060822
  2. CLOZAPINE [Suspect]
     Indication: HALLUCINATION, VISUAL
     Dosage: 12.5 MG 1X PER 1 DAY ORAL
     Route: 048
     Dates: start: 20060819, end: 20060913
  3. NEURONTIN [Suspect]
     Indication: AGITATION
     Dosage: 100 MG 1X PER 1 DAY ORAL
     Route: 048
     Dates: start: 20060814
  4. NEURONTIN [Suspect]
     Indication: RESTLESSNESS
     Dosage: 100 MG 1X PER 1 DAY ORAL
     Route: 048
     Dates: start: 20060814
  5. SINEMET [Suspect]
     Indication: PARKINSON'S DISEASE
     Dosage: 250 MG 4X PER 1 DAY ORAL
     Route: 048
     Dates: start: 20030301
  6. TOLTERODINE TARTRATE [Suspect]
     Indication: STRESS URINARY INCONTINENCE
     Dosage: 2 MG 2X PER 1 DAY ORAL
     Route: 048
     Dates: end: 20060901
  7. FOSAMAX [Concomitant]
  8. UNSPECIFIED HERBAL PRODUCT (UNSPECIFIED HERBAL PRODUCT) [Concomitant]
  9. MOVICOL (MACROGOL/POTASSIUM CHLORIDE/SODIUM BICARBONATE/SODIUM CHLORID [Concomitant]
  10. ASPARTATE MAGNESIUM (MAGNESIUM ASPARTATE) [Concomitant]
  11. CALCIMAGON (CALCIUM CARBONATE/COLECALCIFEROL) [Concomitant]
  12. TRUSOPT [Concomitant]
  13. FLORINEF [Concomitant]

REACTIONS (16)
  - AGITATION [None]
  - BENIGN PROSTATIC HYPERPLASIA [None]
  - CONDITION AGGRAVATED [None]
  - CONFUSIONAL STATE [None]
  - DEMENTIA [None]
  - DEPRESSION [None]
  - DISORIENTATION [None]
  - DISTURBANCE IN ATTENTION [None]
  - DRUG INTERACTION [None]
  - FALL [None]
  - GAIT DISTURBANCE [None]
  - HALLUCINATION, VISUAL [None]
  - NORMOCHROMIC NORMOCYTIC ANAEMIA [None]
  - RENAL FAILURE CHRONIC [None]
  - SOMNOLENCE [None]
  - STUPOR [None]
